FAERS Safety Report 5528753-X (Version None)
Quarter: 2007Q4

REPORT INFORMATION
  Report Type: 
  Country: None (occurrence: None)
  Receive Date: 20071126
  Receipt Date: 20071119
  Transmission Date: 20080405
  Serious: Yes (Death, Life-Threatening, Other)
  Sender: FDA-Public Use
  Company Number: 2007SP009358

PATIENT
  Age: 61 Year
  Sex: Female
  Weight: 72.5755 kg

DRUGS (11)
  1. EPTIFIBATIDE (S-P) [Suspect]
     Indication: DRUG USE FOR UNKNOWN INDICATION
     Dosage: 6.8 ML; ONCE; INBO; 4.3 ML; QH; INDRP; 6.8 ML; ONCE; INBO
     Route: 040
     Dates: start: 20070411, end: 20070411
  2. EPTIFIBATIDE (S-P) [Suspect]
     Indication: DRUG USE FOR UNKNOWN INDICATION
     Dosage: 6.8 ML; ONCE; INBO; 4.3 ML; QH; INDRP; 6.8 ML; ONCE; INBO
     Route: 040
     Dates: start: 20070411, end: 20070411
  3. EPTIFIBATIDE (S-P) [Suspect]
     Indication: DRUG USE FOR UNKNOWN INDICATION
     Dosage: 6.8 ML; ONCE; INBO; 4.3 ML; QH; INDRP; 6.8 ML; ONCE; INBO
     Route: 040
     Dates: start: 20070411
  4. LOVENOX [Suspect]
     Indication: DRUG USE FOR UNKNOWN INDICATION
     Dosage: 0.5 MG/KG; SC
     Route: 058
     Dates: start: 20070401, end: 20070411
  5. AMIODARONE HCL [Concomitant]
  6. DOPAMINE HCL [Concomitant]
  7. CARDENE [Concomitant]
  8. VISIPAQUE [Concomitant]
  9. PLAVIX [Concomitant]
  10. NITROGLYCERIN [Concomitant]
  11. DOPAMINE HCL [Concomitant]

REACTIONS (5)
  - CARDIO-RESPIRATORY ARREST [None]
  - CATHETER THROMBOSIS [None]
  - CORONARY ARTERY THROMBOSIS [None]
  - DRUG INEFFECTIVE [None]
  - PROCEDURAL COMPLICATION [None]
